FAERS Safety Report 6659875-8 (Version None)
Quarter: 2010Q1

REPORT INFORMATION
  Report Type: 
  Country: None (occurrence: None)
  Receive Date: 20100330
  Receipt Date: 20100323
  Transmission Date: 20100710
  Serious: Yes (Death, Life-Threatening, Hospitalization, Disabling)
  Sender: FDA-Public Use
  Company Number: JP-ABBOTT-10P-087-0634011-00

PATIENT
  Sex: Male

DRUGS (26)
  1. AKINETON INJECTION [Suspect]
     Indication: PARKINSONISM
     Dates: start: 20030530, end: 20030620
  2. SERENACE [Suspect]
     Indication: HALLUCINATION
     Dates: start: 20030530, end: 20030620
  3. SERENACE [Suspect]
     Indication: DELUSION
     Dates: start: 20030530, end: 20030619
  4. TOFRANIL [Suspect]
     Indication: DEPRESSION
     Dates: start: 20030614, end: 20030619
  5. DEPROMEL [Concomitant]
     Indication: DEPRESSION
     Dosage: 75 MILLIGRAM/DAY
     Dates: start: 20030530, end: 20030619
  6. DEPAS [Concomitant]
     Indication: ANXIETY
     Dosage: 1.5 MILLIGRAM/DAY
     Dates: start: 20030530, end: 20030619
  7. TASMOLIN [Concomitant]
     Indication: PARKINSONISM
     Dosage: 3 MILLIGRAM/DAY
     Dates: start: 20030530, end: 20030612
  8. ANAFRANIL [Concomitant]
     Indication: DEPRESSION
     Dosage: 75 MILLIGRAM/DAY
     Dates: start: 20030530, end: 20030614
  9. ANAFRANIL [Concomitant]
     Dates: start: 20030530, end: 20030613
  10. LUDIOMIL [Concomitant]
     Indication: DEPRESSION
     Dosage: 25 MILLIGRAM/DAY
     Dates: start: 20030530, end: 20030614
  11. TETRAMIDE [Concomitant]
     Indication: DEPRESSION
     Dosage: 30 MILLIGRAM/DAY
     Dates: start: 20030614, end: 20030619
  12. BENZALIN [Concomitant]
     Indication: INSOMNIA
     Dates: start: 20030530, end: 20030612
  13. BENZALIN [Concomitant]
     Dosage: 10 MILLIGRAM/DAY
     Dates: start: 20030613, end: 20030619
  14. DORMICUM [Concomitant]
     Indication: SEDATION
     Dosage: 10 MILLIGRAM/DAY
     Dates: start: 20030530, end: 20030530
  15. GLUCOSE [Concomitant]
     Indication: NUTRITIONAL SUPPORT
     Dosage: 500 MILLILITER/DAY
     Dates: start: 20030530, end: 20030613
  16. SOLDEM 3A [Concomitant]
     Indication: ELECTROLYTE SUBSTITUTION THERAPY
     Dosage: 500 MILLILITER/DAY
     Dates: start: 20030530, end: 20030613
  17. VEGETAMIN B [Concomitant]
     Indication: INSOMNIA
     Dosage: 1 DOSAGE FORM/DAY
     Dates: start: 20030603, end: 20030607
  18. VEGETAMIN B [Concomitant]
     Dosage: 2 DOSAGE FORM/DAY
     Dates: start: 20030608, end: 20030610
  19. VEGETAMIN A [Concomitant]
     Indication: INSOMNIA
     Dosage: 1 DOSAGE FORM/DAY
     Dates: start: 20030611, end: 20030614
  20. KOLANTYL [Concomitant]
     Indication: PROPHYLAXIS AGAINST GASTROINTESTINAL ULCER
     Dosage: 3 GRAM/DAY
     Dates: start: 20030610, end: 20030619
  21. ELIETEN [Concomitant]
     Indication: PROPHYLAXIS AGAINST GASTROINTESTINAL ULCER
     Dosage: 1.5 GRAM/DAY
     Dates: start: 20030610, end: 20030619
  22. ALOSENN [Concomitant]
     Indication: CONSTIPATION
     Dosage: 1 GRAM/DAY
     Dates: start: 20030610, end: 20030619
  23. HEAVY MAGENSIUM OXIDE [Concomitant]
     Indication: CONSTIPATION
     Dosage: 1 GRAM/DAY
     Dates: start: 20030618, end: 20030619
  24. GLYSENNID [Concomitant]
     Indication: CONSTIPATION
     Dosage: 36 MILLIGRAM/DAY
     Dates: start: 20030613, end: 20030619
  25. CEFACLOR [Concomitant]
     Indication: UPPER RESPIRATORY TRACT INFECTION
     Dosage: 750 MILLIGRAM/DAY
     Dates: start: 20030607, end: 20030610
  26. INDOMETHACIN [Concomitant]
     Indication: PYREXIA
     Dosage: 25 MILLIGRAM/DAY
     Dates: start: 20030607, end: 20030607

REACTIONS (3)
  - DYSPHAGIA [None]
  - NEUROLEPTIC MALIGNANT SYNDROME [None]
  - RESPIRATORY FAILURE [None]
